FAERS Safety Report 19858451 (Version 1)
Quarter: 2021Q3

REPORT INFORMATION
  Report Type: Spontaneous
  Country: US (occurrence: US)
  Receive Date: 20210920
  Receipt Date: 20210920
  Transmission Date: 20211014
  Serious: No
  Sender: FDA-Public Use
  Company Number: US-GALDERMA-US2021015653

PATIENT
  Sex: Male

DRUGS (2)
  1. CERAVE MOISTURIZING CREAM [Concomitant]
     Active Substance: COSMETICS
     Indication: THERAPEUTIC SKIN CARE TOPICAL
     Dosage: UNKNOWN
     Route: 065
  2. DIFFERIN GEL [Suspect]
     Active Substance: ADAPALENE
     Indication: PRODUCT USED FOR UNKNOWN INDICATION
     Dosage: 1 DOSAGE FORM, QD ONCE A DAY
     Route: 061

REACTIONS (1)
  - Product use in unapproved indication [Recovered/Resolved]
